FAERS Safety Report 17510581 (Version 1)
Quarter: 2020Q1

REPORT INFORMATION
  Report Type: Report from Study
  Country: CA (occurrence: CA)
  Receive Date: 20200306
  Receipt Date: 20200306
  Transmission Date: 20200409
  Serious: Yes (Other)
  Sender: FDA-Public Use
  Company Number: CA-NALPROPION PHARMACEUTICALS INC.-2020-009792

PATIENT

DRUGS (4)
  1. CONTRAVE [Suspect]
     Active Substance: BUPROPION HYDROCHLORIDE\NALTREXONE HYDROCHLORIDE
     Dosage: 2 TABLET IN THE MORNING AND 1 TABLET IN THE EVENING; STRENGTH 90/8 MG
     Route: 048
     Dates: start: 20200206, end: 20200212
  2. CONTRAVE [Suspect]
     Active Substance: BUPROPION HYDROCHLORIDE\NALTREXONE HYDROCHLORIDE
     Indication: WEIGHT CONTROL
     Dosage: 1 TABLET IN THE MORNING; STRENGTH 90/8 MG
     Route: 048
     Dates: start: 20200123, end: 20200129
  3. CONTRAVE [Suspect]
     Active Substance: BUPROPION HYDROCHLORIDE\NALTREXONE HYDROCHLORIDE
     Dosage: 2 TABLET IN THE MORNING AND 2 TABLET IN THE EVENING; STRENGTH 90/8 MG
     Route: 048
     Dates: start: 20200213, end: 20200223
  4. CONTRAVE [Suspect]
     Active Substance: BUPROPION HYDROCHLORIDE\NALTREXONE HYDROCHLORIDE
     Dosage: 1 TABLET IN THE MORNING AND 1 TABLET IN THE EVENING; STRENGTH 90/8 MG
     Route: 048
     Dates: start: 20200130, end: 20200205

REACTIONS (11)
  - Chest discomfort [Unknown]
  - Tremor [Unknown]
  - Pain [Unknown]
  - Panic attack [Unknown]
  - Insomnia [Unknown]
  - Therapy cessation [Unknown]
  - Blood pressure systolic increased [Recovered/Resolved]
  - Burning sensation [Unknown]
  - Palpitations [Unknown]
  - Vertigo [Not Recovered/Not Resolved]
  - Constipation [Unknown]

NARRATIVE: CASE EVENT DATE: 20200220
